FAERS Safety Report 5350375-4 (Version None)
Quarter: 2007Q2

REPORT INFORMATION
  Report Type: 
  Country: None (occurrence: None)
  Receive Date: 20070606
  Receipt Date: 20070606
  Transmission Date: 20071010
  Serious: Yes (Other)
  Sender: FDA-Public Use
  Company Number: None

PATIENT
  Age: 30 Year
  Sex: Female

DRUGS (5)
  1. INTRAVENOUS IMMUNE GLOBULIN 6GM CARIMUNE [Suspect]
     Indication: AUTOIMMUNE DISORDER
     Dosage: 42GM QD IV
     Route: 042
     Dates: start: 20070416, end: 20070417
  2. INTRAVENOUS IMMUNE GLOBULIN 6GM CARIMUNE [Suspect]
     Indication: URTICARIA
     Dosage: 42GM QD IV
     Route: 042
     Dates: start: 20070416, end: 20070417
  3. PREDNISONE TAB [Concomitant]
  4. PHERNERGAN [Concomitant]
  5. PERCOCET [Concomitant]

REACTIONS (4)
  - BLOOD PRESSURE INCREASED [None]
  - INFUSION RELATED REACTION [None]
  - MIGRAINE [None]
  - TENSION HEADACHE [None]
